FAERS Safety Report 22587180 (Version 1)
Quarter: 2023Q2

REPORT INFORMATION
  Report Type: Spontaneous
  Country: CN (occurrence: CN)
  Receive Date: 20230612
  Receipt Date: 20230612
  Transmission Date: 20230721
  Serious: Yes (Life-Threatening, Other)
  Sender: FDA-Public Use
  Company Number: ALC2023CN002819

PATIENT
  Age: 36 Year
  Sex: Male
  Weight: 95 kg

DRUGS (1)
  1. FLUORESCITE [Suspect]
     Active Substance: FLUORESCEIN SODIUM
     Indication: Angiogram retina
     Dosage: 2.6 MILLILITER, ONCE/SINGLE
     Route: 042
     Dates: start: 20230525, end: 20230525

REACTIONS (6)
  - Pulse absent [Recovered/Resolved]
  - Obstructive airways disorder [Recovered/Resolved]
  - Pharyngeal oedema [Recovered/Resolved]
  - Loss of consciousness [Recovered/Resolved]
  - Sneezing [Recovered/Resolved]
  - Pruritus [Recovered/Resolved]

NARRATIVE: CASE EVENT DATE: 20230525
